FAERS Safety Report 16481805 (Version 1)
Quarter: 2019Q2

REPORT INFORMATION
  Report Type: Spontaneous
  Country: CN (occurrence: CN)
  Receive Date: 20190627
  Receipt Date: 20190627
  Transmission Date: 20190711
  Serious: Yes (Other)
  Sender: FDA-Public Use
  Company Number: CN-ROCHE-2338707

PATIENT
  Sex: Female

DRUGS (5)
  1. TACROLIMUS. [Concomitant]
     Active Substance: TACROLIMUS
     Indication: RENAL TRANSPLANT
     Route: 065
     Dates: start: 20140101
  2. MYCOPHENOLATE MOFETIL. [Suspect]
     Active Substance: MYCOPHENOLATE MOFETIL
     Indication: RENAL TRANSPLANT
     Route: 065
     Dates: start: 2014
  3. TACROLIMUS. [Concomitant]
     Active Substance: TACROLIMUS
     Dosage: 2.5MG ONCE IN EARLY AND 2.5MG ONCE AT LATE
     Route: 065
     Dates: start: 20180101
  4. MYCOPHENOLATE MOFETIL. [Suspect]
     Active Substance: MYCOPHENOLATE MOFETIL
     Dosage: 0.75G ONCE IN MORNING+0.5G ONCE IN EVENING
     Route: 065
  5. PREDNISOLONE. [Concomitant]
     Active Substance: PREDNISOLONE
     Indication: RENAL TRANSPLANT
     Route: 065
     Dates: start: 20140101

REACTIONS (8)
  - Blood creatinine abnormal [Unknown]
  - Protein urine present [Unknown]
  - Congenital arterial malformation [Unknown]
  - Tubulointerstitial nephritis [Unknown]
  - Chronic kidney disease [Unknown]
  - Arterial stenosis [Unknown]
  - Capillaritis [Unknown]
  - Renal tubular atrophy [Unknown]
